FAERS Safety Report 7165516-6 (Version None)
Quarter: 2010Q4

REPORT INFORMATION
  Report Type: 
  Country: None (occurrence: None)
  Receive Date: 20101215
  Receipt Date: 20100122
  Transmission Date: 20110411
  Serious: No
  Sender: FDA-Public Use
  Company Number: US-AMGEN-KDL382609

PATIENT

DRUGS (8)
  1. ENBREL [Suspect]
     Indication: RHEUMATOID ARTHRITIS
     Dosage: 50 MG, QWK
     Route: 058
     Dates: start: 20061101
  2. HYDROXYCHLOROQUINE SULFATE [Concomitant]
     Dosage: 200 MG, BID
     Dates: start: 20080101
  3. METHOTREXATE [Concomitant]
     Dosage: 25 MG, QWK
     Dates: start: 20080101
  4. NIFEDIPINE [Concomitant]
  5. TRIAMTERENE AND HYDROCHLOROTHIAZIDE [Concomitant]
  6. FOLIC ACID [Concomitant]
  7. PREDNISONE [Concomitant]
  8. ACETAMINOPHEN AND HYDROCODONE BITARTRATE [Concomitant]

REACTIONS (4)
  - JOINT RANGE OF MOTION DECREASED [None]
  - MUSCULOSKELETAL STIFFNESS [None]
  - PAIN IN EXTREMITY [None]
  - PARAESTHESIA [None]
